FAERS Safety Report 25361971 (Version 4)
Quarter: 2025Q4

REPORT INFORMATION
  Report Type: Report from Study
  Country: BR (occurrence: BR)
  Receive Date: 20250527
  Receipt Date: 20251114
  Transmission Date: 20260117
  Serious: Yes (Hospitalization)
  Sender: BIOGEN
  Company Number: BR-BIOGEN-2024BI01294207

PATIENT
  Age: 51 Year
  Sex: Female
  Weight: 64 kg

DRUGS (9)
  1. TYSABRI [Suspect]
     Active Substance: NATALIZUMAB
     Indication: Multiple sclerosis
  2. TYSABRI [Suspect]
     Active Substance: NATALIZUMAB
     Dates: start: 2022
  3. TYSABRI [Suspect]
     Active Substance: NATALIZUMAB
     Dates: start: 2024
  4. TYSABRI [Suspect]
     Active Substance: NATALIZUMAB
     Dates: start: 20240127
  5. Donarem (Trazodone) [Concomitant]
     Indication: Multiple sclerosis
  6. Donarem (Trazodone) [Concomitant]
  7. MIRTAZAPINE [Concomitant]
     Active Substance: MIRTAZAPINE
     Indication: Multiple sclerosis
     Dosage: NOT ASKED
  8. VOLTAREN [Concomitant]
     Active Substance: DICLOFENAC SODIUM
     Indication: Multiple sclerosis
  9. GABAPENTIN [Concomitant]
     Active Substance: GABAPENTIN
     Indication: Multiple sclerosis

REACTIONS (3)
  - Breast cancer female [Recovered/Resolved]
  - Thyroid disorder [Unknown]
  - Weight decreased [Unknown]

NARRATIVE: CASE EVENT DATE: 20241004
